FAERS Safety Report 7232736-1 (Version None)
Quarter: 2011Q1

REPORT INFORMATION
  Report Type: 
  Country: None (occurrence: None)
  Receive Date: 20110119
  Receipt Date: 20110110
  Transmission Date: 20110831
  Serious: Yes (Other)
  Sender: FDA-Public Use
  Company Number: DE-SANOFI-AVENTIS-2010SA074239

PATIENT
  Age: 53 Year
  Sex: Male
  Weight: 94 kg

DRUGS (5)
  1. MULTAQ [Suspect]
     Route: 048
     Dates: start: 20100906, end: 20101116
  2. RAMIPRIL [Concomitant]
     Dosage: DOSE: 1/2 TABLET DAILY.
     Route: 048
  3. CONCOR [Concomitant]
     Route: 048
  4. MARCUMAR [Concomitant]
     Indication: THROMBOSIS PROPHYLAXIS
     Dosage: DOSAGE: ACCORDING TO INR
     Route: 048
  5. FINASTERIDE [Concomitant]
     Route: 048

REACTIONS (3)
  - PRURITUS [None]
  - RASH GENERALISED [None]
  - ATRIAL FIBRILLATION [None]
